FAERS Safety Report 4819143-3 (Version None)
Quarter: 2005Q4

REPORT INFORMATION
  Report Type: 
  Country: None (occurrence: None)
  Receive Date: 20051012
  Receipt Date: 20050819
  Transmission Date: 20060501
  Serious: No
  Sender: FDA-Public Use
  Company Number: A03200502610

PATIENT
  Age: 88 Year
  Sex: Male

DRUGS (1)
  1. UROXATRAL - ALFUSZOSIN HYDROCHLORIDE - TABLET PR - 10 MG [Suspect]
     Dosage: ORAL
     Route: 048

REACTIONS (2)
  - ACCIDENTAL OVERDOSE [None]
  - DIFFICULTY IN WALKING [None]
